FAERS Safety Report 20530122 (Version 1)
Quarter: 2022Q1

REPORT INFORMATION
  Report Type: Spontaneous
  Country: ES (occurrence: ES)
  Receive Date: 20220301
  Receipt Date: 20220301
  Transmission Date: 20220424
  Serious: Yes (Hospitalization)
  Sender: FDA-Public Use
  Company Number: None

PATIENT
  Age: 72 Year
  Sex: Male

DRUGS (7)
  1. BISOPROLOL [Suspect]
     Active Substance: BISOPROLOL
     Indication: Myocardial ischaemia
     Dosage: 5.0 MG C/24 H, BISOPROLOL (2328A)
     Route: 048
     Dates: start: 20180116, end: 20200904
  2. ACETAMINOPHEN [Concomitant]
     Active Substance: ACETAMINOPHEN
     Indication: Pain
     Dosage: 650.0 MG DECOCE,PARACETAMOL CINFA 650 MG FILM-COATED TABLETS EFG, 40 TABLETS
     Route: 048
     Dates: start: 20200820
  3. OMEPRAZOLE [Concomitant]
     Active Substance: OMEPRAZOLE
     Indication: Gastritis
     Dosage: 20.0 MG A-DE, OMEPRAZOLE CINFAMED 20 MG HARD GASTRO-RESISTANT CAPSULES EFG, 56 CAPSULES
     Route: 048
     Dates: start: 20180116
  4. SPIRIVA [Concomitant]
     Active Substance: TIOTROPIUM BROMIDE MONOHYDRATE
     Indication: Bronchitis
     Dosage: 2.0 PUFF C/24 H, SPIRIVA RESPIMAT 2.5 MICROGRAMS INHALATION SOLUTION, 1 REFILLABLE INHALER + 1 CARTR
     Route: 050
     Dates: start: 20180116
  5. CHOLECALCIFEROL [Concomitant]
     Active Substance: CHOLECALCIFEROL
     Indication: Product used for unknown indication
     Dosage: 1600.0 IU OF, DELTIUS 10,000 IU/ML ORAL DROPS, SOLUTION, 1 BOTTLE OF 10 ML
     Route: 048
     Dates: start: 20170613
  6. EXELON [Concomitant]
     Active Substance: RIVASTIGMINE TARTRATE
     Indication: Dementia Alzheimer^s type
     Dosage: 9.5 MG C/24 H, EXELON 9.5 MG/24 H TRANSDERMAL PATCH, 60 PATCHES
     Dates: start: 20200408
  7. ALPRAZOLAM [Concomitant]
     Active Substance: ALPRAZOLAM
     Indication: Insomnia
     Dosage: 1.0 MG C/24 H NOC, ALPRAZOLAM CINFA, 1 MG EFG TABLETS, 30 TABLETS
     Route: 048
     Dates: start: 20200706

REACTIONS (1)
  - Sinus bradycardia [Recovered/Resolved]

NARRATIVE: CASE EVENT DATE: 20200904
